FAERS Safety Report 10490520 (Version 3)
Quarter: 2014Q4

REPORT INFORMATION
  Report Type: Spontaneous
  Country: JP (occurrence: JP)
  Receive Date: 20141002
  Receipt Date: 20141124
  Transmission Date: 20150528
  Serious: Yes (Hospitalization, Other)
  Sender: FDA-Public Use
  Company Number: JP-PFIZER INC-2014270553

PATIENT
  Age: 65 Year
  Sex: Female

DRUGS (3)
  1. PILSICAINIDE [Suspect]
     Active Substance: PILSICAINIDE
     Indication: ARRHYTHMIA
     Dosage: UNK
     Route: 048
     Dates: start: 2011
  2. ZITHROMAC SR [Suspect]
     Active Substance: AZITHROMYCIN DIHYDRATE
     Dosage: 2 G, SINGLE
     Route: 048
     Dates: start: 20140901, end: 20140901
  3. CALONAL [Suspect]
     Active Substance: ACETAMINOPHEN
     Dosage: 400 MG, FREQUENCY UNKNOWN
     Route: 048
     Dates: start: 20140901, end: 20140901

REACTIONS (2)
  - Anaphylactic reaction [Recovered/Resolved]
  - Colitis ischaemic [Recovered/Resolved]

NARRATIVE: CASE EVENT DATE: 20140901
